FAERS Safety Report 4805899-2 (Version None)
Quarter: 2005Q4

REPORT INFORMATION
  Report Type: 
  Country: None (occurrence: None)
  Receive Date: 20051019
  Receipt Date: 20050929
  Transmission Date: 20060501
  Serious: Yes (Hospitalization, Other)
  Sender: FDA-Public Use
  Company Number: USA040670853

PATIENT
  Age: 76 Year
  Sex: Female

DRUGS (3)
  1. FORTEO [Suspect]
     Indication: OSTEOPOROSIS
     Dosage: 20 UG DAY
     Dates: start: 20040601, end: 20050201
  2. PLAVIX [Concomitant]
  3. ALLERGY SHOT [Concomitant]

REACTIONS (20)
  - ABASIA [None]
  - ADRENAL CYST [None]
  - CEREBROVASCULAR DISORDER [None]
  - CONFUSIONAL STATE [None]
  - DECREASED APPETITE [None]
  - DIZZINESS [None]
  - DYSARTHRIA [None]
  - FATIGUE [None]
  - HALLUCINATION, AUDITORY [None]
  - HYPOKALAEMIA [None]
  - LIVER DISORDER [None]
  - LUNG CANCER METASTATIC [None]
  - LUNG DISORDER [None]
  - MALIGNANT NEOPLASM PROGRESSION [None]
  - METASTASES TO LIVER [None]
  - PAIN IN EXTREMITY [None]
  - PNEUMONIA [None]
  - RENAL CYST [None]
  - SMALL CELL CARCINOMA [None]
  - SOMNOLENCE [None]
